FAERS Safety Report 7387999-9 (Version None)
Quarter: 2011Q2

REPORT INFORMATION
  Report Type: 
  Country: None (occurrence: None)
  Receive Date: 20110401
  Receipt Date: 20110324
  Transmission Date: 20111010
  Serious: Yes (Life-Threatening)
  Sender: FDA-Public Use
  Company Number: DE-TEVA-273399GER

PATIENT
  Age: 52 Year
  Sex: Female
  Weight: 89 kg

DRUGS (8)
  1. IDARUBICIN HCL [Suspect]
     Indication: ACUTE MYELOID LEUKAEMIA
     Route: 042
     Dates: start: 20110223, end: 20110227
  2. ETOPOSIDE [Suspect]
     Indication: ACUTE MYELOID LEUKAEMIA
     Route: 042
     Dates: start: 20110223, end: 20110225
  3. POSACONAZOLE [Concomitant]
     Route: 042
     Dates: start: 20110302
  4. CYTARABINE [Suspect]
     Indication: ACUTE MYELOID LEUKAEMIA
     Route: 042
     Dates: start: 20110223, end: 20110301
  5. MSI [Concomitant]
     Route: 042
     Dates: start: 20110304
  6. GEMTUZUMAB OZOGAMICIN [Suspect]
     Indication: ACUTE MYELOID LEUKAEMIA
     Route: 042
     Dates: start: 20110223, end: 20110223
  7. TRETINOIN [Suspect]
     Indication: ACUTE MYELOID LEUKAEMIA
     Route: 042
     Dates: start: 20110228
  8. POSACONAZOLE [Concomitant]
     Route: 042
     Dates: start: 20110301, end: 20110301

REACTIONS (4)
  - SEPSIS [None]
  - SEPTIC SHOCK [None]
  - COLITIS [None]
  - METABOLIC ACIDOSIS [None]
